FAERS Safety Report 5503983-1 (Version None)
Quarter: 2007Q4

REPORT INFORMATION
  Report Type: 
  Country: None (occurrence: None)
  Receive Date: 20071101
  Receipt Date: 20071026
  Transmission Date: 20080405
  Serious: Yes (Other)
  Sender: FDA-Public Use
  Company Number: US-JNJFOC-20071008001

PATIENT
  Age: 46 Year
  Sex: Male
  Weight: 108.86 kg

DRUGS (2)
  1. SIMPLY SLEEP NIGHTTIME [Suspect]
     Route: 048
  2. SIMPLY SLEEP NIGHTTIME [Suspect]
     Indication: INSOMNIA
     Route: 048

REACTIONS (4)
  - ASTHENIA [None]
  - FALL [None]
  - HYPERSOMNIA [None]
  - LACERATION [None]
